FAERS Safety Report 12233273 (Version 8)
Quarter: 2016Q2

REPORT INFORMATION
  Report Type: Report from Study
  Country: US (occurrence: US)
  Receive Date: 20160404
  Receipt Date: 20160512
  Transmission Date: 20160815
  Serious: Yes (Other)
  Sender: FDA-Public Use
  Company Number: US-GILEAD-2016-0201735

PATIENT
  Age: 60 Year
  Sex: Female

DRUGS (2)
  1. VELETRI [Suspect]
     Active Substance: EPOPROSTENOL
     Indication: PRODUCT USED FOR UNKNOWN INDICATION
     Route: 065
  2. AMBRISENTAN [Suspect]
     Active Substance: AMBRISENTAN
     Indication: PRODUCT USED FOR UNKNOWN INDICATION
     Dosage: 10 MG, QD
     Route: 065
     Dates: start: 20150916

REACTIONS (26)
  - Anxiety [Unknown]
  - Nervousness [Not Recovered/Not Resolved]
  - Unevaluable event [Unknown]
  - Status epilepticus [Unknown]
  - Headache [Unknown]
  - Fatigue [Unknown]
  - Dyspnoea [Unknown]
  - Migraine [Unknown]
  - Balance disorder [Unknown]
  - Hyperhidrosis [Unknown]
  - Tooth extraction [Unknown]
  - Feeling jittery [Not Recovered/Not Resolved]
  - Muscular weakness [Unknown]
  - Pain in jaw [Not Recovered/Not Resolved]
  - Application site pruritus [Unknown]
  - Infusion site pruritus [Unknown]
  - Malaise [Unknown]
  - Oedema peripheral [Not Recovered/Not Resolved]
  - Flushing [Unknown]
  - Tremor [Unknown]
  - Epistaxis [Unknown]
  - Pain in extremity [Unknown]
  - Tooth disorder [Unknown]
  - Feeling cold [Unknown]
  - Palpitations [Unknown]
  - Hot flush [Unknown]

NARRATIVE: CASE EVENT DATE: 20160328
